FAERS Safety Report 21714860 (Version 1)
Quarter: 2022Q4

REPORT INFORMATION
  Report Type: Spontaneous
  Country: US (occurrence: None)
  Receive Date: 20221209
  Receipt Date: 20221209
  Transmission Date: 20230112
  Serious: No
  Sender: FDA-Public Use
  Company Number: None

PATIENT
  Sex: 0

DRUGS (1)
  1. HUMULIN N [Suspect]
     Active Substance: INSULIN HUMAN
     Dosage: OTHER STRENGTH : UNITS/ML;?

REACTIONS (2)
  - Maternal exposure during pregnancy [None]
  - Foetal exposure during pregnancy [None]
